FAERS Safety Report 17525768 (Version 1)
Quarter: 2020Q1

REPORT INFORMATION
  Report Type: Spontaneous
  Country: US (occurrence: US)
  Receive Date: 20200303
  Receipt Date: 20200303
  Transmission Date: 20200409
  Serious: Yes (Life-Threatening)
  Sender: FDA-Public Use
  Company Number: None

PATIENT
  Age: 57 Year
  Sex: Male

DRUGS (1)
  1. HYDRALAZINE (HYDRALAZINE HCL 20MG/ML INJ) [Suspect]
     Active Substance: HYDRALAZINE HYDROCHLORIDE
     Indication: HYPERTENSION
     Route: 042
     Dates: start: 20191107, end: 20191107

REACTIONS (2)
  - Tachycardia [None]
  - Blood pressure orthostatic decreased [None]

NARRATIVE: CASE EVENT DATE: 20191107
